FAERS Safety Report 9736652 (Version 2)
Quarter: 2015Q3

REPORT INFORMATION
  Report Type: Spontaneous
  Country: US (occurrence: US)
  Receive Date: 20131206
  Receipt Date: 20150804
  Transmission Date: 20151125
  Serious: No
  Sender: FDA-Public Use
  Company Number: US-GILEAD-2009-0022758

PATIENT
  Age: 54 Year
  Sex: Male
  Weight: 97.52 kg

DRUGS (21)
  1. FUROSEMIDE. [Concomitant]
     Active Substance: FUROSEMIDE
  2. ZYRTEC [Concomitant]
     Active Substance: CETIRIZINE HYDROCHLORIDE
  3. ENULOSE [Concomitant]
     Active Substance: LACTULOSE
  4. POTASSIUM CHLORIDE. [Concomitant]
     Active Substance: POTASSIUM CHLORIDE
  5. OCSO MULTIVITAMIN [Concomitant]
  6. ALPRAZOLAM. [Concomitant]
     Active Substance: ALPRAZOLAM
  7. ASPIRIN. [Concomitant]
     Active Substance: ASPIRIN
  8. FLONASE 0.05% [Concomitant]
  9. LETAIRIS [Suspect]
     Active Substance: AMBRISENTAN
     Indication: PULMONARY ARTERIAL HYPERTENSION
     Route: 048
     Dates: start: 20081128
  10. REVATIO [Concomitant]
     Active Substance: SILDENAFIL CITRATE
  11. OXYGEN. [Concomitant]
     Active Substance: OXYGEN
  12. AMLODIPINE BESYLATE. [Concomitant]
     Active Substance: AMLODIPINE BESYLATE
  13. FLOMAX [Concomitant]
     Active Substance: TAMSULOSIN HYDROCHLORIDE
  14. COMBIVENT [Concomitant]
     Active Substance: ALBUTEROL SULFATE\IPRATROPIUM BROMIDE
  15. CYCLOSPORINE. [Concomitant]
     Active Substance: CYCLOSPORINE
  16. ALENDRONATE SODIUM. [Concomitant]
     Active Substance: ALENDRONATE SODIUM
  17. MAG 64 [Concomitant]
  18. BACTRIM DS [Concomitant]
     Active Substance: SULFAMETHOXAZOLE\TRIMETHOPRIM
  19. LISINOPRIL. [Concomitant]
     Active Substance: LISINOPRIL
  20. URSODIOL. [Concomitant]
     Active Substance: URSODIOL
  21. CALCIUM [Concomitant]
     Active Substance: CALCIUM

REACTIONS (1)
  - Nasal congestion [Unknown]
